FAERS Safety Report 7866395-1 (Version None)
Quarter: 2011Q4

REPORT INFORMATION
  Report Type: 
  Country: None (occurrence: None)
  Receive Date: 20111028
  Receipt Date: 20110610
  Transmission Date: 20120403
  Serious: No
  Sender: FDA-Public Use
  Company Number: US-GLAXOSMITHKLINE-A0931153A

PATIENT
  Age: 72 Year
  Sex: Male

DRUGS (6)
  1. LOSARTAN POTASSIUM [Concomitant]
  2. DUONEB [Concomitant]
  3. PARADOX [Concomitant]
  4. NEBULIZER [Concomitant]
  5. ADVAIR DISKUS 100/50 [Suspect]
     Indication: ASBESTOSIS
     Dosage: 1PUFF TWICE PER DAY
     Route: 055
     Dates: start: 19910101
  6. LOVASTATIN [Concomitant]

REACTIONS (1)
  - BLOOD PRESSURE INCREASED [None]
